FAERS Safety Report 6589251-8 (Version None)
Quarter: 2010Q1

REPORT INFORMATION
  Report Type: 
  Country: None (occurrence: None)
  Receive Date: 20100212
  Receipt Date: 20100126
  Transmission Date: 20100710
  Serious: Yes (Death, Hospitalization, Congenital Anomaly)
  Sender: FDA-Public Use
  Company Number: DSM-2010-00102

PATIENT
  Sex: 0

DRUGS (1)
  1. OLMESARTAN MEDOXOMIL [Suspect]
     Indication: DRUG EXPOSURE DURING PREGNANCY
     Dosage: TRANSPLACENTAL
     Route: 064
     Dates: end: 20100119

REACTIONS (9)
  - ARRHYTHMIA NEONATAL [None]
  - CAESAREAN SECTION [None]
  - CIRCULATORY FAILURE NEONATAL [None]
  - FOETAL GROWTH RETARDATION [None]
  - HYPERKALAEMIA [None]
  - MATERNAL DRUGS AFFECTING FOETUS [None]
  - NEONATAL DISORDER [None]
  - PREMATURE BABY [None]
  - RENAL FAILURE NEONATAL [None]
